FAERS Safety Report 23405952 (Version 3)
Quarter: 2024Q1

REPORT INFORMATION
  Report Type: Other
  Country: CA (occurrence: None)
  Receive Date: 20240116
  Receipt Date: 20240308
  Transmission Date: 20240410
  Serious: No
  Sender: FDA-Public Use
  Company Number: CA-ROCHE-2643979

PATIENT
  Sex: Female
  Weight: 59.9 kg

DRUGS (5)
  1. OCREVUS [Suspect]
     Active Substance: OCRELIZUMAB
     Indication: Relapsing-remitting multiple sclerosis
     Dosage: 300 MG AT DAY 0 AND 14, THEN 600 MG EVERY 6 MONTH?CONCENTRATE FOR INTRAVENOUS INFUSION
     Route: 042
     Dates: start: 20200713
  2. NAPROXEN [Concomitant]
     Active Substance: NAPROXEN
     Indication: Premedication
     Dosage: PREMEDICATION
     Route: 048
  3. CANNABIDIOL [Concomitant]
     Active Substance: CANNABIDIOL
  4. CARBAMAZEPINE [Concomitant]
     Active Substance: CARBAMAZEPINE
  5. ESCITALOPRAM [Concomitant]
     Active Substance: ESCITALOPRAM OXALATE

REACTIONS (28)
  - Hypoaesthesia [Unknown]
  - Pain in extremity [Unknown]
  - Headache [Unknown]
  - Nausea [Unknown]
  - Dizziness [Recovered/Resolved]
  - Fatigue [Not Recovered/Not Resolved]
  - Infusion related reaction [Unknown]
  - Insomnia [Unknown]
  - Asthenia [Unknown]
  - Amnesia [Not Recovered/Not Resolved]
  - Hot flush [Unknown]
  - Anaemia [Not Recovered/Not Resolved]
  - Decreased immune responsiveness [Unknown]
  - Gait disturbance [Not Recovered/Not Resolved]
  - Vertigo [Recovered/Resolved]
  - Muscular weakness [Not Recovered/Not Resolved]
  - Brain fog [Unknown]
  - Muscle spasms [Not Recovered/Not Resolved]
  - Alopecia [Not Recovered/Not Resolved]
  - Lipoma [Not Recovered/Not Resolved]
  - Paraesthesia [Unknown]
  - Muscle tightness [Not Recovered/Not Resolved]
  - Thirst [Not Recovered/Not Resolved]
  - Vision blurred [Recovered/Resolved]
  - Abnormal sensation in eye [Recovering/Resolving]
  - Dry eye [Recovering/Resolving]
  - Swelling of eyelid [Not Recovered/Not Resolved]
  - COVID-19 [Unknown]
